FAERS Safety Report 6893749-2 (Version None)
Quarter: 2010Q3

REPORT INFORMATION
  Report Type: 
  Country: None (occurrence: None)
  Receive Date: 20100802
  Receipt Date: 20100722
  Transmission Date: 20110219
  Serious: Yes (Hospitalization)
  Sender: FDA-Public Use
  Company Number: US-BIOGENIDEC-2010BI019764

PATIENT
  Age: 31 Year
  Sex: Female
  Weight: 99 kg

DRUGS (1)
  1. TYSABRI [Suspect]
     Indication: MULTIPLE SCLEROSIS
     Route: 042
     Dates: start: 20070607, end: 20091122

REACTIONS (2)
  - ARNOLD-CHIARI MALFORMATION [None]
  - SYRINGOMYELIA [None]
